FAERS Safety Report 8421563-5 (Version None)
Quarter: 2012Q2

REPORT INFORMATION
  Report Type: 
  Country: None (occurrence: None)
  Receive Date: 20120601
  Receipt Date: 20120523
  Transmission Date: 20120825
  Serious: Yes (Hospitalization)
  Sender: FDA-Public Use
  Company Number: 2012000127

PATIENT
  Age: 89 Year
  Sex: Female

DRUGS (7)
  1. LASIX [Concomitant]
  2. ALLOPURINOL [Concomitant]
  3. ACEON [Suspect]
     Indication: PRODUCT USED FOR UNKNOWN INDICATION
     Dosage: 5 MG, QD, ORAL
     Route: 048
     Dates: start: 20111201
  4. SECTRAL [Suspect]
     Indication: PRODUCT USED FOR UNKNOWN INDICATION
     Dosage: 200 MQ, QD, ORAL
     Route: 048
     Dates: start: 20020101, end: 20120303
  5. LEVOTHYROXINE SODIUM [Concomitant]
  6. OMEPRAZOLE [Concomitant]
  7. SINTROM [Concomitant]

REACTIONS (6)
  - SINOATRIAL BLOCK [None]
  - ATRIOVENTRICULAR BLOCK COMPLETE [None]
  - MALAISE [None]
  - HYPERKALAEMIA [None]
  - DIARRHOEA [None]
  - RENAL FAILURE [None]
